FAERS Safety Report 5695743-6 (Version None)
Quarter: 2008Q2

REPORT INFORMATION
  Report Type: 
  Country: None (occurrence: None)
  Receive Date: 20080407
  Receipt Date: 20080326
  Transmission Date: 20081010
  Serious: Yes (Death)
  Sender: FDA-Public Use
  Company Number: US-ELI_LILLY_AND_COMPANY-US200803005996

PATIENT
  Sex: Male

DRUGS (2)
  1. ZYPREXA [Suspect]
     Indication: BIPOLAR DISORDER
     Dosage: 10 MG, DAILY (1/D)
     Dates: start: 20070601, end: 20070901
  2. DEPAKOTE [Concomitant]
     Dosage: 1000 MG, UNK

REACTIONS (3)
  - DRUG INEFFECTIVE [None]
  - MANIA [None]
  - ROAD TRAFFIC ACCIDENT [None]
